FAERS Safety Report 24599966 (Version 2)
Quarter: 2025Q2

REPORT INFORMATION
  Report Type: Spontaneous
  Country: US (occurrence: US)
  Receive Date: 20241110
  Receipt Date: 20250410
  Transmission Date: 20250717
  Serious: No
  Sender: SANOFI AVENTIS
  Company Number: US-SA-2024SA319339

PATIENT
  Age: 66 Year
  Sex: Female

DRUGS (29)
  1. DUPIXENT [Suspect]
     Active Substance: DUPILUMAB
     Indication: Asthma
     Dosage: 300 MG, QOW
     Route: 058
  2. TRELEGY ELLIPTA [Concomitant]
     Active Substance: FLUTICASONE FUROATE\UMECLIDINIUM BROMIDE\VILANTEROL TRIFENATATE
  3. ALBUTEROL SULFATE [Concomitant]
     Active Substance: ALBUTEROL SULFATE
  4. AZELASTINE HYDROCHLORIDE [Concomitant]
     Active Substance: AZELASTINE HYDROCHLORIDE
  5. BACLOFEN [Concomitant]
     Active Substance: BACLOFEN
  6. VITAMIN D3 [Concomitant]
     Active Substance: CHOLECALCIFEROL
  7. METFORMIN HYDROCHLORIDE [Concomitant]
     Active Substance: METFORMIN HYDROCHLORIDE
  8. MORPHINE SULFATE [Concomitant]
     Active Substance: MORPHINE SULFATE
  9. PREGABALIN [Concomitant]
     Active Substance: PREGABALIN
  10. TRIAMCINOLONE [Concomitant]
     Active Substance: TRIAMCINOLONE
  11. ONDANSETRON [Concomitant]
     Active Substance: ONDANSETRON
  12. OXCARBAZEPINE [Concomitant]
     Active Substance: OXCARBAZEPINE
  13. TOUJEO MAX [Concomitant]
     Active Substance: INSULIN GLARGINE
  14. TIZANIDINE HYDROCHLORIDE [Concomitant]
     Active Substance: TIZANIDINE HYDROCHLORIDE
  15. HYDROCODONE [Concomitant]
     Active Substance: HYDROCODONE
  16. ESTRADIOL [Concomitant]
     Active Substance: ESTRADIOL
  17. FUROSEMIDE [Concomitant]
     Active Substance: FUROSEMIDE
  18. FLUCONAZOLE [Concomitant]
     Active Substance: FLUCONAZOLE
  19. FLUTICASONE [Concomitant]
     Active Substance: FLUTICASONE
     Dosage: 50 UG, QD
  20. LIDOCAINE\PRILOCAINE [Concomitant]
     Active Substance: LIDOCAINE\PRILOCAINE
  21. SERTRALINE HYDROCHLORIDE [Concomitant]
     Active Substance: SERTRALINE HYDROCHLORIDE
  22. PRIMIDONE [Concomitant]
     Active Substance: PRIMIDONE
  23. LINZESS [Concomitant]
     Active Substance: LINACLOTIDE
  24. PREDNISONE [Concomitant]
     Active Substance: PREDNISONE
  25. OMEPRAZOLE [Concomitant]
     Active Substance: OMEPRAZOLE
  26. LOVASTATIN [Concomitant]
     Active Substance: LOVASTATIN
  27. NOVOLOG [Concomitant]
     Active Substance: INSULIN ASPART
  28. NABUMETONE [Concomitant]
     Active Substance: NABUMETONE
  29. CARISOPRODOL [Concomitant]
     Active Substance: CARISOPRODOL

REACTIONS (4)
  - Respiration abnormal [Unknown]
  - Sleep disorder due to a general medical condition [Unknown]
  - Loss of personal independence in daily activities [Unknown]
  - Asthma [Unknown]

NARRATIVE: CASE EVENT DATE: 20240101
